FAERS Safety Report 25954288 (Version 1)
Quarter: 2025Q4

REPORT INFORMATION
  Report Type: Report from Study
  Country: IL (occurrence: IL)
  Receive Date: 20251023
  Receipt Date: 20251023
  Transmission Date: 20260118
  Serious: Yes (Hospitalization)
  Sender: MERCK SHARP & DOHME LLC
  Company Number: IL-009507513-2321219

PATIENT
  Age: 73 Year
  Sex: Male

DRUGS (4)
  1. WINREVAIR [Suspect]
     Active Substance: SOTATERCEPT-CSRK
     Indication: Pulmonary arterial hypertension
     Dosage: 0.7 MG/KG, SC-ABDOMEN OR UPPER THIGH, ONCE EVERY 3 WEEKS
     Route: 058
     Dates: start: 2025
  2. WINREVAIR [Suspect]
     Active Substance: SOTATERCEPT-CSRK
     Dosage: 0.3 MG/KG, SC-ABDOMEN OR UPPER THIGH, ONCE EVERY 3 WEEKS
     Route: 058
     Dates: start: 20250812
  3. WINREVAIR [Suspect]
     Active Substance: SOTATERCEPT-CSRK
  4. WINREVAIR [Suspect]
     Active Substance: SOTATERCEPT-CSRK

REACTIONS (5)
  - Haemoglobin decreased [Recovered/Resolved]
  - Diarrhoea [Recovered/Resolved]
  - Abdominal pain upper [Recovered/Resolved]
  - Gastrointestinal angiodysplasia [Unknown]
  - Gastrointestinal haemorrhage [Unknown]

NARRATIVE: CASE EVENT DATE: 20250813
